FAERS Safety Report 18928627 (Version 4)
Quarter: 2022Q4

REPORT INFORMATION
  Report Type: Report from Study
  Country: CA (occurrence: CA)
  Receive Date: 20210223
  Receipt Date: 20221017
  Transmission Date: 20230113
  Serious: Yes (Other)
  Sender: FDA-Public Use
  Company Number: CA-SHIRE-CA202021308

PATIENT
  Age: 70 Year
  Sex: Female

DRUGS (7)
  1. HUMAN IMMUNOGLOBULIN G [Suspect]
     Active Substance: HUMAN IMMUNOGLOBULIN G
     Indication: Primary immunodeficiency syndrome
     Dosage: 60 GRAM, 1/WEEK
     Route: 058
     Dates: start: 20180928
  2. HUMAN IMMUNOGLOBULIN G [Suspect]
     Active Substance: HUMAN IMMUNOGLOBULIN G
     Dosage: 12 GRAM, 1/WEEK
     Route: 058
     Dates: start: 20180928
  3. HUMAN IMMUNOGLOBULIN G [Suspect]
     Active Substance: HUMAN IMMUNOGLOBULIN G
     Dosage: 12 GRAM, 1/WEEK
     Route: 050
     Dates: start: 20180928
  4. PERINDOPRIL [Concomitant]
     Active Substance: PERINDOPRIL
     Dosage: UNK
     Route: 065
  5. HIZENTRA [Concomitant]
     Active Substance: HUMAN IMMUNOGLOBULIN G
     Dosage: UNK
     Route: 065
  6. METFORMIN [Concomitant]
     Active Substance: METFORMIN HYDROCHLORIDE
     Indication: Type 2 diabetes mellitus
     Dosage: UNK UNK, BID
     Route: 065
  7. Covid-19 vaccine [Concomitant]
     Dosage: UNK
     Route: 065

REACTIONS (15)
  - Cataract [Unknown]
  - Type 2 diabetes mellitus [Unknown]
  - Pneumonia bacterial [Recovered/Resolved]
  - Platelet count decreased [Unknown]
  - Scar [Recovered/Resolved]
  - Fear of injection [Recovered/Resolved]
  - Therapy interrupted [Unknown]
  - Ear infection bacterial [Recovered/Resolved]
  - Eye infection bacterial [Recovered/Resolved]
  - Blood immunoglobulin A increased [Unknown]
  - Blood immunoglobulin G decreased [Unknown]
  - Blood immunoglobulin M decreased [Unknown]
  - Device use issue [Unknown]
  - Product dose omission issue [Recovered/Resolved]
  - Product use complaint [Unknown]

NARRATIVE: CASE EVENT DATE: 20201101
